FAERS Safety Report 20623829 (Version 2)
Quarter: 2022Q2

REPORT INFORMATION
  Report Type: Spontaneous
  Country: US (occurrence: US)
  Receive Date: 20220322
  Receipt Date: 20220415
  Transmission Date: 20220720
  Serious: No
  Sender: FDA-Public Use
  Company Number: US-PFIZER INC-2021325130

PATIENT
  Age: 67 Year
  Sex: Female

DRUGS (2)
  1. IBRANCE [Suspect]
     Active Substance: PALBOCICLIB
     Indication: Breast cancer female
     Dosage: UNK
  2. VITAMIN K [Concomitant]
     Active Substance: PHYTONADIONE
     Dosage: UNK

REACTIONS (2)
  - Abdominal discomfort [Unknown]
  - Feeling abnormal [Unknown]
